FAERS Safety Report 9767821 (Version 1)
Quarter: 2013Q4

REPORT INFORMATION
  Report Type: Spontaneous
  Country: US (occurrence: None)
  Receive Date: 20131213
  Receipt Date: 20131213
  Transmission Date: 20140711
  Serious: Yes (Life-Threatening)
  Sender: FDA-Public Use
  Company Number: PI-10023

PATIENT
  Age: 66 Year
  Sex: Female

DRUGS (5)
  1. CHLORAPREP [Suspect]
     Route: 061
     Dates: start: 20131025
  2. CARTIA [Concomitant]
  3. ASPIRIN [Concomitant]
  4. POTASSIUM [Concomitant]
  5. MAGNESIUM [Concomitant]

REACTIONS (7)
  - Pruritus [None]
  - Choking [None]
  - Pharyngeal oedema [None]
  - Burning sensation [None]
  - Rhinorrhoea [None]
  - Parosmia [None]
  - Anaphylactic reaction [None]
